FAERS Safety Report 25364077 (Version 1)
Quarter: 2025Q2

REPORT INFORMATION
  Report Type: Spontaneous
  Country: HU (occurrence: HU)
  Receive Date: 20250527
  Receipt Date: 20250527
  Transmission Date: 20250717
  Serious: Yes (Death, Hospitalization, Other)
  Sender: BIOVITRUM
  Company Number: HU-BIOVITRUM-2025-HU-004617

PATIENT
  Age: 6 Decade
  Sex: Female

DRUGS (154)
  1. PEGCETACOPLAN [Suspect]
     Active Substance: PEGCETACOPLAN
     Indication: Paroxysmal nocturnal haemoglobinuria
     Route: 058
     Dates: start: 20230103, end: 20240827
  2. PEGCETACOPLAN [Suspect]
     Active Substance: PEGCETACOPLAN
     Route: 042
     Dates: start: 20230103, end: 20240827
  3. PEGCETACOPLAN [Suspect]
     Active Substance: PEGCETACOPLAN
     Route: 058
     Dates: start: 20230113, end: 20230113
  4. PEGCETACOPLAN [Suspect]
     Active Substance: PEGCETACOPLAN
     Route: 058
     Dates: start: 20230117, end: 20230117
  5. PEGCETACOPLAN [Suspect]
     Active Substance: PEGCETACOPLAN
     Route: 058
     Dates: start: 20230120, end: 20230120
  6. PEGCETACOPLAN [Suspect]
     Active Substance: PEGCETACOPLAN
     Route: 058
     Dates: start: 20230127, end: 20230127
  7. PEGCETACOPLAN [Suspect]
     Active Substance: PEGCETACOPLAN
     Route: 058
     Dates: start: 20230131, end: 20230131
  8. PEGCETACOPLAN [Suspect]
     Active Substance: PEGCETACOPLAN
     Route: 058
     Dates: start: 20230203, end: 20230203
  9. PEGCETACOPLAN [Suspect]
     Active Substance: PEGCETACOPLAN
     Route: 058
     Dates: start: 20230207, end: 20230207
  10. PEGCETACOPLAN [Suspect]
     Active Substance: PEGCETACOPLAN
     Route: 058
     Dates: start: 20230210, end: 20230210
  11. PEGCETACOPLAN [Suspect]
     Active Substance: PEGCETACOPLAN
     Route: 058
     Dates: start: 20230214, end: 20230214
  12. PEGCETACOPLAN [Suspect]
     Active Substance: PEGCETACOPLAN
     Route: 058
     Dates: start: 20230217, end: 20230217
  13. PEGCETACOPLAN [Suspect]
     Active Substance: PEGCETACOPLAN
     Route: 058
     Dates: start: 20230221, end: 20230221
  14. PEGCETACOPLAN [Suspect]
     Active Substance: PEGCETACOPLAN
     Route: 058
     Dates: start: 20230224, end: 20230224
  15. PEGCETACOPLAN [Suspect]
     Active Substance: PEGCETACOPLAN
     Route: 058
     Dates: start: 20230228, end: 20230228
  16. PEGCETACOPLAN [Suspect]
     Active Substance: PEGCETACOPLAN
     Route: 058
     Dates: start: 20230303, end: 20230303
  17. PEGCETACOPLAN [Suspect]
     Active Substance: PEGCETACOPLAN
     Route: 058
     Dates: start: 20230307, end: 20230307
  18. PEGCETACOPLAN [Suspect]
     Active Substance: PEGCETACOPLAN
     Route: 058
     Dates: start: 20230308, end: 20230308
  19. PEGCETACOPLAN [Suspect]
     Active Substance: PEGCETACOPLAN
     Route: 058
     Dates: start: 20230310, end: 20230310
  20. PEGCETACOPLAN [Suspect]
     Active Substance: PEGCETACOPLAN
     Route: 058
     Dates: start: 20230314, end: 20230314
  21. PEGCETACOPLAN [Suspect]
     Active Substance: PEGCETACOPLAN
     Route: 058
     Dates: start: 20230317, end: 20230317
  22. PEGCETACOPLAN [Suspect]
     Active Substance: PEGCETACOPLAN
     Route: 058
     Dates: start: 20230321, end: 20230321
  23. PEGCETACOPLAN [Suspect]
     Active Substance: PEGCETACOPLAN
     Route: 058
     Dates: start: 20230324, end: 20230324
  24. PEGCETACOPLAN [Suspect]
     Active Substance: PEGCETACOPLAN
     Route: 058
     Dates: start: 20230328, end: 20230328
  25. PEGCETACOPLAN [Suspect]
     Active Substance: PEGCETACOPLAN
     Route: 058
     Dates: start: 20230331, end: 20230331
  26. PEGCETACOPLAN [Suspect]
     Active Substance: PEGCETACOPLAN
     Route: 058
     Dates: start: 20230407, end: 20230407
  27. PEGCETACOPLAN [Suspect]
     Active Substance: PEGCETACOPLAN
     Route: 058
     Dates: start: 20230411, end: 20230411
  28. PEGCETACOPLAN [Suspect]
     Active Substance: PEGCETACOPLAN
     Route: 058
     Dates: start: 20230414, end: 20230414
  29. PEGCETACOPLAN [Suspect]
     Active Substance: PEGCETACOPLAN
     Route: 058
     Dates: start: 20230318, end: 20230318
  30. PEGCETACOPLAN [Suspect]
     Active Substance: PEGCETACOPLAN
     Route: 058
     Dates: start: 20230505, end: 20230505
  31. PEGCETACOPLAN [Suspect]
     Active Substance: PEGCETACOPLAN
     Route: 042
     Dates: start: 20230509, end: 20230509
  32. PEGCETACOPLAN [Suspect]
     Active Substance: PEGCETACOPLAN
     Route: 058
     Dates: start: 20230512, end: 20230512
  33. PEGCETACOPLAN [Suspect]
     Active Substance: PEGCETACOPLAN
     Route: 058
     Dates: start: 20230516, end: 20230516
  34. PEGCETACOPLAN [Suspect]
     Active Substance: PEGCETACOPLAN
     Route: 042
     Dates: start: 20230519, end: 20230519
  35. PEGCETACOPLAN [Suspect]
     Active Substance: PEGCETACOPLAN
     Route: 042
     Dates: start: 20230526, end: 20230526
  36. PEGCETACOPLAN [Suspect]
     Active Substance: PEGCETACOPLAN
     Route: 042
     Dates: start: 20230530, end: 20230530
  37. PEGCETACOPLAN [Suspect]
     Active Substance: PEGCETACOPLAN
     Route: 058
     Dates: start: 20230605, end: 20230605
  38. PEGCETACOPLAN [Suspect]
     Active Substance: PEGCETACOPLAN
     Route: 058
     Dates: start: 20230607, end: 20230607
  39. PEGCETACOPLAN [Suspect]
     Active Substance: PEGCETACOPLAN
     Route: 058
     Dates: start: 20230609, end: 20230609
  40. PEGCETACOPLAN [Suspect]
     Active Substance: PEGCETACOPLAN
     Route: 058
     Dates: start: 20230612, end: 20230612
  41. PEGCETACOPLAN [Suspect]
     Active Substance: PEGCETACOPLAN
     Route: 058
     Dates: start: 20230614, end: 20230614
  42. PEGCETACOPLAN [Suspect]
     Active Substance: PEGCETACOPLAN
     Route: 058
     Dates: start: 20230616, end: 20230616
  43. PEGCETACOPLAN [Suspect]
     Active Substance: PEGCETACOPLAN
     Route: 058
     Dates: start: 20230619, end: 20230619
  44. PEGCETACOPLAN [Suspect]
     Active Substance: PEGCETACOPLAN
     Route: 058
     Dates: start: 20230623, end: 20230623
  45. PEGCETACOPLAN [Suspect]
     Active Substance: PEGCETACOPLAN
     Route: 058
     Dates: start: 20230626, end: 20230626
  46. PEGCETACOPLAN [Suspect]
     Active Substance: PEGCETACOPLAN
     Route: 058
     Dates: start: 20230628, end: 20230628
  47. PEGCETACOPLAN [Suspect]
     Active Substance: PEGCETACOPLAN
     Route: 058
     Dates: start: 20230630, end: 20230630
  48. PEGCETACOPLAN [Suspect]
     Active Substance: PEGCETACOPLAN
     Route: 058
     Dates: start: 20230703, end: 20230703
  49. PEGCETACOPLAN [Suspect]
     Active Substance: PEGCETACOPLAN
     Route: 058
     Dates: start: 20230705, end: 20230705
  50. PEGCETACOPLAN [Suspect]
     Active Substance: PEGCETACOPLAN
     Route: 042
     Dates: start: 20230707, end: 20230707
  51. PEGCETACOPLAN [Suspect]
     Active Substance: PEGCETACOPLAN
     Route: 058
     Dates: start: 20230710, end: 20230710
  52. PEGCETACOPLAN [Suspect]
     Active Substance: PEGCETACOPLAN
     Route: 058
     Dates: start: 20230712, end: 20230712
  53. PEGCETACOPLAN [Suspect]
     Active Substance: PEGCETACOPLAN
     Route: 058
     Dates: start: 20230714, end: 20230714
  54. PEGCETACOPLAN [Suspect]
     Active Substance: PEGCETACOPLAN
     Route: 058
     Dates: start: 20230717, end: 20230717
  55. PEGCETACOPLAN [Suspect]
     Active Substance: PEGCETACOPLAN
     Route: 058
     Dates: start: 20230719, end: 20230719
  56. PEGCETACOPLAN [Suspect]
     Active Substance: PEGCETACOPLAN
     Route: 058
     Dates: start: 20230721, end: 20230721
  57. PEGCETACOPLAN [Suspect]
     Active Substance: PEGCETACOPLAN
     Route: 058
     Dates: start: 20230725, end: 20230725
  58. PEGCETACOPLAN [Suspect]
     Active Substance: PEGCETACOPLAN
     Route: 058
     Dates: start: 20230728, end: 20230728
  59. PEGCETACOPLAN [Suspect]
     Active Substance: PEGCETACOPLAN
     Route: 058
     Dates: start: 20230801, end: 20230801
  60. PEGCETACOPLAN [Suspect]
     Active Substance: PEGCETACOPLAN
     Route: 058
     Dates: start: 20230804, end: 20230804
  61. PEGCETACOPLAN [Suspect]
     Active Substance: PEGCETACOPLAN
     Route: 058
     Dates: start: 20230807, end: 20230807
  62. PEGCETACOPLAN [Suspect]
     Active Substance: PEGCETACOPLAN
     Route: 058
     Dates: start: 20230809, end: 20230809
  63. PEGCETACOPLAN [Suspect]
     Active Substance: PEGCETACOPLAN
     Route: 058
     Dates: start: 20230811, end: 20230811
  64. PEGCETACOPLAN [Suspect]
     Active Substance: PEGCETACOPLAN
     Route: 058
     Dates: start: 20230814, end: 20230814
  65. PEGCETACOPLAN [Suspect]
     Active Substance: PEGCETACOPLAN
     Route: 058
     Dates: start: 20230816, end: 20230816
  66. PEGCETACOPLAN [Suspect]
     Active Substance: PEGCETACOPLAN
     Route: 058
     Dates: start: 20230818, end: 20230818
  67. PEGCETACOPLAN [Suspect]
     Active Substance: PEGCETACOPLAN
     Route: 042
     Dates: start: 20230821, end: 20230821
  68. PEGCETACOPLAN [Suspect]
     Active Substance: PEGCETACOPLAN
     Route: 042
     Dates: start: 20230823, end: 20230823
  69. PEGCETACOPLAN [Suspect]
     Active Substance: PEGCETACOPLAN
     Route: 042
     Dates: start: 20230825, end: 20230825
  70. PEGCETACOPLAN [Suspect]
     Active Substance: PEGCETACOPLAN
     Route: 042
     Dates: start: 20230828, end: 20230828
  71. PEGCETACOPLAN [Suspect]
     Active Substance: PEGCETACOPLAN
     Route: 042
     Dates: start: 20230830, end: 20230830
  72. PEGCETACOPLAN [Suspect]
     Active Substance: PEGCETACOPLAN
     Route: 058
     Dates: start: 20230904, end: 20230904
  73. PEGCETACOPLAN [Suspect]
     Active Substance: PEGCETACOPLAN
     Route: 058
     Dates: start: 20230908, end: 20230908
  74. PEGCETACOPLAN [Suspect]
     Active Substance: PEGCETACOPLAN
     Route: 058
     Dates: start: 20230912, end: 20230912
  75. PEGCETACOPLAN [Suspect]
     Active Substance: PEGCETACOPLAN
     Route: 058
     Dates: start: 20230915, end: 20230915
  76. PEGCETACOPLAN [Suspect]
     Active Substance: PEGCETACOPLAN
     Route: 058
     Dates: start: 20230918, end: 20230918
  77. PEGCETACOPLAN [Suspect]
     Active Substance: PEGCETACOPLAN
     Route: 058
     Dates: start: 20230920, end: 20230920
  78. PEGCETACOPLAN [Suspect]
     Active Substance: PEGCETACOPLAN
     Route: 058
     Dates: start: 20230922, end: 20230922
  79. PEGCETACOPLAN [Suspect]
     Active Substance: PEGCETACOPLAN
     Route: 058
     Dates: start: 20230925, end: 20230925
  80. PEGCETACOPLAN [Suspect]
     Active Substance: PEGCETACOPLAN
     Route: 058
     Dates: start: 20230927, end: 20230927
  81. PEGCETACOPLAN [Suspect]
     Active Substance: PEGCETACOPLAN
     Route: 042
     Dates: start: 20230929, end: 20230929
  82. PEGCETACOPLAN [Suspect]
     Active Substance: PEGCETACOPLAN
     Route: 042
     Dates: start: 20231002, end: 20231002
  83. PEGCETACOPLAN [Suspect]
     Active Substance: PEGCETACOPLAN
     Route: 042
     Dates: start: 20231004, end: 20231004
  84. PEGCETACOPLAN [Suspect]
     Active Substance: PEGCETACOPLAN
     Route: 042
     Dates: start: 20231006, end: 20231006
  85. PEGCETACOPLAN [Suspect]
     Active Substance: PEGCETACOPLAN
     Route: 058
     Dates: start: 20231009, end: 20231009
  86. PEGCETACOPLAN [Suspect]
     Active Substance: PEGCETACOPLAN
     Route: 042
     Dates: start: 20231011, end: 20231011
  87. PEGCETACOPLAN [Suspect]
     Active Substance: PEGCETACOPLAN
     Route: 058
     Dates: start: 20231013, end: 20231013
  88. PEGCETACOPLAN [Suspect]
     Active Substance: PEGCETACOPLAN
     Route: 058
     Dates: start: 20231017, end: 20231017
  89. PEGCETACOPLAN [Suspect]
     Active Substance: PEGCETACOPLAN
     Route: 058
     Dates: start: 20231020, end: 20231020
  90. PEGCETACOPLAN [Suspect]
     Active Substance: PEGCETACOPLAN
     Route: 058
     Dates: start: 20231027, end: 20231027
  91. PEGCETACOPLAN [Suspect]
     Active Substance: PEGCETACOPLAN
     Route: 058
     Dates: start: 20231031, end: 20231031
  92. PEGCETACOPLAN [Suspect]
     Active Substance: PEGCETACOPLAN
     Route: 058
     Dates: start: 20231103, end: 20231103
  93. PEGCETACOPLAN [Suspect]
     Active Substance: PEGCETACOPLAN
     Route: 058
     Dates: start: 20231107, end: 20231107
  94. PEGCETACOPLAN [Suspect]
     Active Substance: PEGCETACOPLAN
     Route: 058
     Dates: start: 20231110, end: 20231110
  95. PEGCETACOPLAN [Suspect]
     Active Substance: PEGCETACOPLAN
     Route: 058
     Dates: start: 20231117, end: 20231117
  96. PEGCETACOPLAN [Suspect]
     Active Substance: PEGCETACOPLAN
     Route: 058
     Dates: start: 20231121, end: 20231121
  97. PEGCETACOPLAN [Suspect]
     Active Substance: PEGCETACOPLAN
     Route: 042
     Dates: start: 20231124, end: 20231124
  98. PEGCETACOPLAN [Suspect]
     Active Substance: PEGCETACOPLAN
     Route: 058
     Dates: start: 20231212, end: 20231212
  99. PEGCETACOPLAN [Suspect]
     Active Substance: PEGCETACOPLAN
     Route: 058
     Dates: start: 20231215, end: 20231215
  100. PEGCETACOPLAN [Suspect]
     Active Substance: PEGCETACOPLAN
     Route: 058
     Dates: start: 20231219, end: 20231219
  101. PEGCETACOPLAN [Suspect]
     Active Substance: PEGCETACOPLAN
     Route: 058
     Dates: start: 20231222, end: 20231222
  102. PEGCETACOPLAN [Suspect]
     Active Substance: PEGCETACOPLAN
     Route: 058
     Dates: start: 20231226, end: 20231226
  103. PEGCETACOPLAN [Suspect]
     Active Substance: PEGCETACOPLAN
     Route: 042
     Dates: start: 20231229, end: 20231229
  104. PEGCETACOPLAN [Suspect]
     Active Substance: PEGCETACOPLAN
     Route: 058
     Dates: start: 20240102, end: 20240102
  105. PEGCETACOPLAN [Suspect]
     Active Substance: PEGCETACOPLAN
     Route: 042
     Dates: start: 20240102, end: 20240102
  106. PEGCETACOPLAN [Suspect]
     Active Substance: PEGCETACOPLAN
     Route: 042
     Dates: start: 20240109, end: 20240109
  107. PEGCETACOPLAN [Suspect]
     Active Substance: PEGCETACOPLAN
     Route: 058
     Dates: start: 20240112, end: 20240112
  108. PEGCETACOPLAN [Suspect]
     Active Substance: PEGCETACOPLAN
     Route: 058
     Dates: start: 20240116, end: 20240116
  109. PEGCETACOPLAN [Suspect]
     Active Substance: PEGCETACOPLAN
     Route: 058
     Dates: start: 20240119, end: 20240123
  110. PEGCETACOPLAN [Suspect]
     Active Substance: PEGCETACOPLAN
     Route: 058
     Dates: start: 20240126, end: 20240126
  111. PEGCETACOPLAN [Suspect]
     Active Substance: PEGCETACOPLAN
     Route: 058
     Dates: start: 20240209, end: 20240209
  112. PEGCETACOPLAN [Suspect]
     Active Substance: PEGCETACOPLAN
     Route: 042
     Dates: start: 20240213, end: 20240213
  113. PEGCETACOPLAN [Suspect]
     Active Substance: PEGCETACOPLAN
     Route: 042
     Dates: start: 20240216, end: 20240216
  114. PEGCETACOPLAN [Suspect]
     Active Substance: PEGCETACOPLAN
     Route: 042
     Dates: start: 20240220, end: 20240220
  115. PEGCETACOPLAN [Suspect]
     Active Substance: PEGCETACOPLAN
     Route: 042
     Dates: start: 20240223, end: 20240223
  116. PEGCETACOPLAN [Suspect]
     Active Substance: PEGCETACOPLAN
     Route: 058
     Dates: start: 20240227, end: 20240227
  117. PEGCETACOPLAN [Suspect]
     Active Substance: PEGCETACOPLAN
     Route: 058
     Dates: start: 20240301, end: 20240301
  118. PEGCETACOPLAN [Suspect]
     Active Substance: PEGCETACOPLAN
     Route: 058
     Dates: start: 20240308, end: 20240308
  119. PEGCETACOPLAN [Suspect]
     Active Substance: PEGCETACOPLAN
     Route: 058
     Dates: start: 20240315, end: 20240319
  120. PEGCETACOPLAN [Suspect]
     Active Substance: PEGCETACOPLAN
     Route: 058
     Dates: start: 20240313, end: 20240319
  121. PEGCETACOPLAN [Suspect]
     Active Substance: PEGCETACOPLAN
     Route: 058
     Dates: start: 20240322, end: 20240322
  122. PEGCETACOPLAN [Suspect]
     Active Substance: PEGCETACOPLAN
     Route: 058
     Dates: start: 20240326, end: 20240326
  123. PEGCETACOPLAN [Suspect]
     Active Substance: PEGCETACOPLAN
     Route: 058
     Dates: start: 20240329, end: 20240329
  124. PEGCETACOPLAN [Suspect]
     Active Substance: PEGCETACOPLAN
     Route: 058
     Dates: start: 20240405, end: 20240405
  125. PEGCETACOPLAN [Suspect]
     Active Substance: PEGCETACOPLAN
     Route: 058
     Dates: start: 20240412, end: 20240412
  126. PEGCETACOPLAN [Suspect]
     Active Substance: PEGCETACOPLAN
     Route: 058
     Dates: start: 20240419, end: 20240419
  127. PEGCETACOPLAN [Suspect]
     Active Substance: PEGCETACOPLAN
     Route: 042
     Dates: start: 20240423, end: 20240423
  128. PEGCETACOPLAN [Suspect]
     Active Substance: PEGCETACOPLAN
     Route: 042
     Dates: start: 20240510, end: 20240510
  129. PEGCETACOPLAN [Suspect]
     Active Substance: PEGCETACOPLAN
     Route: 042
     Dates: start: 20240517, end: 20240517
  130. PEGCETACOPLAN [Suspect]
     Active Substance: PEGCETACOPLAN
     Route: 058
     Dates: start: 20240524, end: 20240524
  131. PEGCETACOPLAN [Suspect]
     Active Substance: PEGCETACOPLAN
     Route: 042
     Dates: start: 20240528, end: 20240528
  132. PEGCETACOPLAN [Suspect]
     Active Substance: PEGCETACOPLAN
     Route: 042
     Dates: start: 20240531, end: 20240531
  133. PEGCETACOPLAN [Suspect]
     Active Substance: PEGCETACOPLAN
     Route: 042
     Dates: start: 20240604, end: 20240604
  134. PEGCETACOPLAN [Suspect]
     Active Substance: PEGCETACOPLAN
     Route: 042
     Dates: start: 20240607, end: 20240607
  135. PEGCETACOPLAN [Suspect]
     Active Substance: PEGCETACOPLAN
     Route: 042
     Dates: start: 20240611, end: 20240611
  136. PEGCETACOPLAN [Suspect]
     Active Substance: PEGCETACOPLAN
     Route: 042
     Dates: start: 20240614, end: 20240614
  137. PEGCETACOPLAN [Suspect]
     Active Substance: PEGCETACOPLAN
     Route: 042
     Dates: start: 20240618, end: 20240618
  138. PEGCETACOPLAN [Suspect]
     Active Substance: PEGCETACOPLAN
     Route: 042
     Dates: start: 20240621, end: 20240621
  139. PEGCETACOPLAN [Suspect]
     Active Substance: PEGCETACOPLAN
     Route: 042
     Dates: start: 20240625, end: 20240625
  140. PEGCETACOPLAN [Suspect]
     Active Substance: PEGCETACOPLAN
     Route: 058
     Dates: start: 20240705, end: 20240705
  141. PEGCETACOPLAN [Suspect]
     Active Substance: PEGCETACOPLAN
     Route: 058
     Dates: start: 20240709, end: 20240709
  142. PEGCETACOPLAN [Suspect]
     Active Substance: PEGCETACOPLAN
     Route: 058
     Dates: start: 20240710, end: 20240710
  143. PEGCETACOPLAN [Suspect]
     Active Substance: PEGCETACOPLAN
     Route: 058
     Dates: start: 20240719, end: 20240719
  144. PEGCETACOPLAN [Suspect]
     Active Substance: PEGCETACOPLAN
     Route: 058
     Dates: start: 20240726, end: 20240726
  145. PEGCETACOPLAN [Suspect]
     Active Substance: PEGCETACOPLAN
     Route: 058
     Dates: start: 20240730, end: 20240730
  146. PEGCETACOPLAN [Suspect]
     Active Substance: PEGCETACOPLAN
     Route: 058
     Dates: start: 20240802, end: 20240802
  147. PEGCETACOPLAN [Suspect]
     Active Substance: PEGCETACOPLAN
     Route: 058
     Dates: start: 20240806, end: 20240806
  148. PEGCETACOPLAN [Suspect]
     Active Substance: PEGCETACOPLAN
     Route: 058
     Dates: start: 20240809, end: 20240809
  149. PEGCETACOPLAN [Suspect]
     Active Substance: PEGCETACOPLAN
     Route: 058
     Dates: start: 20240813, end: 20240813
  150. PEGCETACOPLAN [Suspect]
     Active Substance: PEGCETACOPLAN
     Route: 058
     Dates: start: 20240816, end: 20240816
  151. PEGCETACOPLAN [Suspect]
     Active Substance: PEGCETACOPLAN
     Route: 058
     Dates: start: 20240820, end: 20240820
  152. PEGCETACOPLAN [Suspect]
     Active Substance: PEGCETACOPLAN
     Route: 058
     Dates: start: 20240823, end: 20240823
  153. PEGCETACOPLAN [Suspect]
     Active Substance: PEGCETACOPLAN
     Route: 058
     Dates: start: 20240827, end: 20240827
  154. DOPTELET [Suspect]
     Active Substance: AVATROMBOPAG MALEATE
     Indication: Thrombocytopenia

REACTIONS (27)
  - Complications of bone marrow transplant [Fatal]
  - Anaemia [Recovering/Resolving]
  - Thrombocytopenia [Recovering/Resolving]
  - Epistaxis [Recovering/Resolving]
  - Petechiae [Recovered/Resolved]
  - Oral purpura [Recovered/Resolved]
  - Eye haemorrhage [Unknown]
  - Headache [Unknown]
  - Pruritus [Unknown]
  - Abdominal pain [Unknown]
  - Asthenia [Unknown]
  - Blood pressure fluctuation [Unknown]
  - Dyspnoea [Unknown]
  - Pancytopenia [Unknown]
  - Arthralgia [Unknown]
  - Joint noise [Unknown]
  - Blood pressure increased [Unknown]
  - Marrow hyperplasia [Unknown]
  - Megakaryocytes decreased [Unknown]
  - Back pain [Not Recovered/Not Resolved]
  - Sciatica [Unknown]
  - Chills [Not Recovered/Not Resolved]
  - Pyrexia [Recovered/Resolved with Sequelae]
  - Vomiting [Unknown]
  - Swelling face [Unknown]
  - Haematoma [Unknown]
  - Incorrect route of product administration [Unknown]

NARRATIVE: CASE EVENT DATE: 20230523
